FAERS Safety Report 13181860 (Version 2)
Quarter: 2017Q2

REPORT INFORMATION
  Report Type: Spontaneous
  Country: US (occurrence: US)
  Receive Date: 20170202
  Receipt Date: 20170502
  Transmission Date: 20170830
  Serious: No
  Sender: FDA-Public Use
  Company Number: US-IMPAX LABORATORIES, INC-2016-IPXL-01546

PATIENT
  Age: 69 Year
  Sex: Male
  Weight: 147 kg

DRUGS (5)
  1. CLONAZEPAM. [Concomitant]
     Active Substance: CLONAZEPAM
     Indication: MUSCLE SPASMS
     Dosage: 1.25 MG, 3 /DAY,AT AN INTERVAL OF EVERY 8 HOURS ALTERNATIVELY ROPINIROLE AND CLONAZEPAM
     Route: 065
  2. LEXAPRO [Concomitant]
     Active Substance: ESCITALOPRAM OXALATE
     Indication: ANXIETY DISORDER
     Dosage: 20 MG, 1 /DAY
     Route: 065
  3. ROPINIROLE. [Concomitant]
     Active Substance: ROPINIROLE
     Indication: PARKINSON^S DISEASE
     Dosage: 3 MG, ONE TABLET 3 /DAY AT AN INTERVAL OF EVERY 8 HOURS ALTERNATIVELY ROPINIROLE AND CLONAZEPAM
     Route: 065
  4. RYTARY [Suspect]
     Active Substance: CARBIDOPA\LEVODOPA
     Indication: PARKINSON^S DISEASE
     Dosage: (61.25/245) MG TWO CAPSULES SIX TIMES A DAY
     Route: 048
     Dates: start: 20161020
  5. RYTARY [Suspect]
     Active Substance: CARBIDOPA\LEVODOPA
     Dosage: (48.75/195) MG 3 CAPSULES 3/DAY (10 AM, 2 AND 6 PM), 61.25/245 MG 1/DAY AT 10 PM, 02 AND 06 AM
     Route: 048
     Dates: start: 20161025

REACTIONS (2)
  - Dyskinesia [Not Recovered/Not Resolved]
  - Prescribed overdose [Unknown]

NARRATIVE: CASE EVENT DATE: 20161020
